FAERS Safety Report 5252297-6 (Version None)
Quarter: 2007Q1

REPORT INFORMATION
  Report Type: 
  Country: None (occurrence: None)
  Receive Date: 20070301
  Receipt Date: 20060223
  Transmission Date: 20070707
  Serious: Yes (Hospitalization, Other)
  Sender: FDA-Public Use
  Company Number: US-BRISTOL-MYERS SQUIBB COMPANY-13260617

PATIENT
  Age: 10 Year
  Sex: Female
  Weight: 51 kg

DRUGS (6)
  1. TAXOL [Suspect]
     Indication: OVARIAN NEOPLASM
     Route: 042
     Dates: start: 20060107, end: 20060109
  2. CARBOPLATIN [Concomitant]
  3. ONDANSETRON [Concomitant]
  4. LORAZEPAM [Concomitant]
  5. CIMETIDINE HCL [Concomitant]
  6. DEXAMETHASONE [Concomitant]

REACTIONS (1)
  - HYPOTENSION [None]
